FAERS Safety Report 19584410 (Version 1)
Quarter: 2021Q3

REPORT INFORMATION
  Report Type: Spontaneous
  Country: JP (occurrence: JP)
  Receive Date: 20210720
  Receipt Date: 20210720
  Transmission Date: 20211014
  Serious: Yes (Hospitalization)
  Sender: FDA-Public Use
  Company Number: JP-UPSHER-SMITH LABORATORIES, LLC-2021USL00443

PATIENT
  Age: 80 Year
  Sex: Male
  Weight: 50.7 kg

DRUGS (17)
  1. URIADEC [Concomitant]
     Active Substance: TOPIROXOSTAT
     Dosage: 40 MG
     Route: 048
  2. NICERGOLINE [Suspect]
     Active Substance: NICERGOLINE
     Indication: ABULIA
     Dosage: 15 MG PER DAY
     Route: 048
     Dates: start: 2018, end: 2021
  3. TAKECAB [Concomitant]
     Active Substance: VONOPRAZAN FUMARATE
     Dosage: 20 MG PER DAY
     Route: 048
     Dates: start: 20210402
  4. NICERGOLINE [Suspect]
     Active Substance: NICERGOLINE
     Dosage: UNK, DECREASED
     Dates: start: 2021
  5. MEMANTINE HYDROCHLORIDE. [Suspect]
     Active Substance: MEMANTINE HYDROCHLORIDE
     Dosage: UNK, DECREASED
     Dates: start: 2021
  6. MAGNESIUM OXIDE. [Concomitant]
     Active Substance: MAGNESIUM OXIDE
     Dosage: 2970 MG
     Route: 048
  7. BAKTAR [Concomitant]
     Active Substance: SULFAMETHOXAZOLE\TRIMETHOPRIM
     Dosage: UNK
     Route: 048
     Dates: start: 20210402
  8. AMANTADINE HYDROCHLORIDE. [Suspect]
     Active Substance: AMANTADINE HYDROCHLORIDE
     Indication: DEMENTIA
     Dosage: 50 MG, 3X/DAY (150 MG PER DAY)
     Route: 048
     Dates: start: 2018, end: 20210603
  9. AMANTADINE HYDROCHLORIDE. [Suspect]
     Active Substance: AMANTADINE HYDROCHLORIDE
     Dosage: 100 MG, 1X/DAY
     Route: 048
     Dates: start: 20210604, end: 20210609
  10. AMANTADINE HYDROCHLORIDE. [Suspect]
     Active Substance: AMANTADINE HYDROCHLORIDE
     Dosage: 50 MG, 1X/DAY
     Dates: start: 20210610, end: 20210611
  11. LOSARTAN POTASSIUM. [Suspect]
     Active Substance: LOSARTAN POTASSIUM
     Dosage: UNK, DECREASED
     Dates: start: 2021
  12. RELVAR ELLIPTA [Concomitant]
     Active Substance: FLUTICASONE FUROATE\VILANTEROL TRIFENATATE
     Route: 055
  13. PREDONINE [Concomitant]
     Active Substance: PREDNISOLONE
     Dosage: 7.5 MG PER DAY
     Route: 048
     Dates: start: 20210402
  14. LOSARTAN POTASSIUM. [Suspect]
     Active Substance: LOSARTAN POTASSIUM
     Dosage: 50 MG PER DAY
     Route: 048
     Dates: start: 2018, end: 2021
  15. GALANTAMINE OD [Suspect]
     Active Substance: GALANTAMINE HYDROBROMIDE
     Indication: DEMENTIA ALZHEIMER^S TYPE
     Dosage: 48 MG PER DAY
     Route: 048
     Dates: start: 2018, end: 2021
  16. GALANTAMINE OD [Suspect]
     Active Substance: GALANTAMINE HYDROBROMIDE
     Dosage: UNK, DECREASED
     Dates: start: 2021
  17. MEMANTINE HYDROCHLORIDE. [Suspect]
     Active Substance: MEMANTINE HYDROCHLORIDE
     Indication: DEMENTIA ALZHEIMER^S TYPE
     Dosage: 20 MG PER DAY
     Route: 048
     Dates: start: 2018, end: 2021

REACTIONS (7)
  - Dysphagia [Recovering/Resolving]
  - Tremor [Recovered/Resolved]
  - Gait disturbance [Unknown]
  - Dehydration [Unknown]
  - Renal disorder [Unknown]
  - Dyslalia [Recovered/Resolved]
  - Toxicity to various agents [Unknown]

NARRATIVE: CASE EVENT DATE: 2021
